FAERS Safety Report 5815520-2 (Version None)
Quarter: 2008Q3

REPORT INFORMATION
  Report Type: 
  Country: None (occurrence: None)
  Receive Date: 20080718
  Receipt Date: 20080707
  Transmission Date: 20090109
  Serious: Yes (Death, Hospitalization, Other)
  Sender: FDA-Public Use
  Company Number: US-PFIZER INC-2008056227

PATIENT
  Age: 45 Year
  Sex: Female

DRUGS (2)
  1. ZITHROMAX [Suspect]
     Indication: INFECTION
  2. ALISKIREN [Interacting]
     Indication: HYPERTENSION

REACTIONS (4)
  - DRUG INTERACTION [None]
  - ELECTROCARDIOGRAM QT PROLONGED [None]
  - HEART RATE INCREASED [None]
  - TACHYCARDIA [None]
